FAERS Safety Report 14693169 (Version 2)
Quarter: 2018Q2

REPORT INFORMATION
  Report Type: Spontaneous
  Country: BE (occurrence: BE)
  Receive Date: 20180329
  Receipt Date: 20180418
  Transmission Date: 20180711
  Serious: Yes (Death)
  Sender: FDA-Public Use
  Company Number: BE-LPDUSPRD-20180388

PATIENT
  Age: 64 Year
  Sex: Female
  Weight: 56 kg

DRUGS (4)
  1. D-CURE [Concomitant]
     Active Substance: CHOLECALCIFEROL
     Dosage: 25000 UNITS 3 X PER WK
     Route: 048
  2. FERINJECT [Suspect]
     Active Substance: FERRIC CARBOXYMALTOSE
     Dosage: 1000 MG/ 250 ML NACL 0.9%
     Route: 042
  3. DAFLON [Concomitant]
     Dosage: 3000 MG 1 D
     Route: 048
  4. FERROUS SULFATE. [Concomitant]
     Active Substance: FERROUS SULFATE
     Dosage: 1050 MG , 1 D
     Route: 048

REACTIONS (1)
  - Left ventricular failure [Fatal]

NARRATIVE: CASE EVENT DATE: 20180302
